FAERS Safety Report 13785692 (Version 2)
Quarter: 2017Q3

REPORT INFORMATION
  Report Type: Spontaneous
  Country: GB (occurrence: GB)
  Receive Date: 20170725
  Receipt Date: 20170822
  Transmission Date: 20171127
  Serious: Yes (Death, Hospitalization)
  Sender: FDA-Public Use
  Company Number: GB-MYLANLABS-2017M1042975

PATIENT

DRUGS (5)
  1. VITAMIN B [Concomitant]
     Active Substance: VITAMIN B
     Indication: ALCOHOLISM
     Dosage: UNK, TID
     Route: 048
     Dates: start: 20160907, end: 20170611
  2. PROPRANOLOL [Concomitant]
     Active Substance: PROPRANOLOL HYDROCHLORIDE
     Indication: SINUS TACHYCARDIA
     Dosage: 30 MG, UNK
     Route: 048
     Dates: start: 20160907, end: 20170611
  3. CLOZARIL [Suspect]
     Active Substance: CLOZAPINE
     Indication: SCHIZOPHRENIA
     Dosage: 300 MG, QD
     Route: 048
     Dates: start: 20091216
  4. CLOZARIL [Suspect]
     Active Substance: CLOZAPINE
     Dosage: UNK
     Route: 048
     Dates: start: 2016, end: 20170611
  5. THIAMINE. [Concomitant]
     Active Substance: THIAMINE
     Indication: ALCOHOLISM
     Dosage: 200 MG, UNK
     Route: 048
     Dates: start: 20160907, end: 20170611

REACTIONS (5)
  - Therapy cessation [Recovered/Resolved]
  - Sudden death [Fatal]
  - Physical assault [Unknown]
  - Schizophrenia [Recovering/Resolving]
  - Sinus tachycardia [Unknown]

NARRATIVE: CASE EVENT DATE: 2016
